FAERS Safety Report 10285366 (Version 5)
Quarter: 2014Q4

REPORT INFORMATION
  Report Type: Report from Study
  Country: US (occurrence: US)
  Receive Date: 20140708
  Receipt Date: 20141013
  Transmission Date: 20150528
  Serious: Yes (Death, Hospitalization)
  Sender: FDA-Public Use
  Company Number: PHEH2014US013333

PATIENT
  Age: 55 Year
  Sex: Female

DRUGS (17)
  1. PRENATAL VITAMINS [Concomitant]
     Active Substance: VITAMINS
     Indication: PRODUCT USED FOR UNKNOWN INDICATION
     Route: 065
  2. LIPITOR [Concomitant]
     Active Substance: ATORVASTATIN CALCIUM
     Indication: PRODUCT USED FOR UNKNOWN INDICATION
     Dosage: 10 MG, OD PC
     Route: 065
  3. MACROBID [Concomitant]
     Active Substance: NITROFURANTOIN\NITROFURANTOIN MONOHYDRATE
     Indication: PRODUCT USED FOR UNKNOWN INDICATION
     Dosage: 100 MG, BID
     Route: 065
  4. LORABID [Concomitant]
     Active Substance: LORACARBEF
     Indication: PRODUCT USED FOR UNKNOWN INDICATION
     Route: 065
  5. GILENYA [Suspect]
     Active Substance: FINGOLIMOD HYDROCHLORIDE
     Indication: RELAPSING-REMITTING MULTIPLE SCLEROSIS
     Dosage: 0.5 MG, QD
     Route: 048
     Dates: start: 20110524
  6. ADVACAL//CALCIUM [Concomitant]
     Indication: PRODUCT USED FOR UNKNOWN INDICATION
     Dosage: 1200 MG, QD
     Route: 065
  7. PREDNISOLONE. [Concomitant]
     Active Substance: PREDNISOLONE
     Indication: PRODUCT USED FOR UNKNOWN INDICATION
     Dosage: 7.5 MG, QD
     Route: 065
  8. PREDNISONE. [Concomitant]
     Active Substance: PREDNISONE
     Indication: MULTIPLE SCLEROSIS
     Dosage: 2.5-5 MG QD ALTERNATING WITH 10 MG EVERY OTHER DAY
     Route: 065
  9. VITAMIN C [Concomitant]
     Active Substance: ASCORBIC ACID
     Indication: PRODUCT USED FOR UNKNOWN INDICATION
     Dosage: 1000-20000 MG OD PC
     Route: 065
  10. REVENTA [Concomitant]
     Indication: OSTEOPOROSIS POSTMENOPAUSAL
  11. VITAMIN D [Concomitant]
     Active Substance: CHOLECALCIFEROL
     Indication: PRODUCT USED FOR UNKNOWN INDICATION
     Route: 065
  12. ACIDOPHILUS [Concomitant]
     Active Substance: LACTOBACILLUS ACIDOPHILUS
     Indication: PRODUCT USED FOR UNKNOWN INDICATION
     Route: 065
  13. NEUROBION                          /01262901/ [Concomitant]
     Indication: PRODUCT USED FOR UNKNOWN INDICATION
     Route: 065
  14. VITAMIN D3 [Concomitant]
     Active Substance: CHOLECALCIFEROL
     Indication: PRODUCT USED FOR UNKNOWN INDICATION
     Dosage: 10000 MG, QD
     Route: 065
  15. PRILOSEC [Concomitant]
     Active Substance: OMEPRAZOLE MAGNESIUM
     Indication: PRODUCT USED FOR UNKNOWN INDICATION
     Dosage: 10 MG, OD
     Route: 065
  16. REVENTA [Concomitant]
     Indication: RENAL IMPAIRMENT
     Dosage: 70 MG, OD WEEKLY
     Route: 065
  17. AZATHIOPRINE. [Concomitant]
     Active Substance: AZATHIOPRINE
     Indication: IMMUNOSUPPRESSION
     Dosage: 500 MG, TID
     Route: 065

REACTIONS (34)
  - Pyrexia [Fatal]
  - Coma [Fatal]
  - Fatigue [Fatal]
  - Multiple sclerosis relapse [Fatal]
  - Tachypnoea [Fatal]
  - Hypokalaemia [Unknown]
  - Hyponatraemia [Unknown]
  - Diabetes insipidus [Unknown]
  - Abdominal discomfort [Unknown]
  - Dehydration [Unknown]
  - Stridor [Fatal]
  - Lymphocyte count decreased [Unknown]
  - Brain oedema [Fatal]
  - Headache [Fatal]
  - Acute kidney injury [Fatal]
  - Fall [Unknown]
  - Electrolyte imbalance [Unknown]
  - General physical health deterioration [Fatal]
  - Multi-organ failure [Fatal]
  - Dyspnoea [Fatal]
  - Respiratory failure [Fatal]
  - Hypotension [Unknown]
  - Thrombocytopenia [Unknown]
  - Inappropriate antidiuretic hormone secretion [Unknown]
  - Urinary tract infection [Unknown]
  - Cardiac arrest [Fatal]
  - Sepsis [Fatal]
  - Septic shock [Fatal]
  - Pneumonia [Fatal]
  - Syncope [Unknown]
  - White blood cell count decreased [Unknown]
  - Meningitis cryptococcal [Fatal]
  - Encephalopathy [Fatal]
  - Circulatory collapse [Unknown]

NARRATIVE: CASE EVENT DATE: 20140318
